FAERS Safety Report 15884723 (Version 4)
Quarter: 2019Q1

REPORT INFORMATION
  Report Type: Report from Study
  Country: AT (occurrence: AT)
  Receive Date: 20190129
  Receipt Date: 20190308
  Transmission Date: 20190417
  Serious: Yes (Hospitalization)
  Sender: FDA-Public Use
  Company Number: AT-ROCHE-2222680

PATIENT
  Age: 67 Year
  Sex: Male
  Weight: 57 kg

DRUGS (20)
  1. DIAMICRON [Concomitant]
     Active Substance: GLICLAZIDE
     Route: 048
     Dates: start: 20180418
  2. ATORVASTATIN [Concomitant]
     Active Substance: ATORVASTATIN
     Route: 048
     Dates: start: 20170625
  3. MYCOSTATIN [Concomitant]
     Active Substance: NYSTATIN
     Route: 048
     Dates: start: 20181220, end: 20181231
  4. SUPRESSIN [Concomitant]
     Route: 048
     Dates: start: 20170625, end: 20181230
  5. ADAMON (AUSTRIA) [Concomitant]
     Route: 048
     Dates: start: 20181126, end: 20190120
  6. ENZALUTAMIDE [Suspect]
     Active Substance: ENZALUTAMIDE
     Indication: HORMONE-REFRACTORY PROSTATE CANCER
     Dosage: ON 22/NOV/2018, HE RECEIVED HIS MOST RECENT DOSE (160 MG) OF ENZALUTAMIDEPRIOR TO THE AE ONSET.?ON 2
     Route: 048
     Dates: start: 20180509
  7. LYRICA [Concomitant]
     Active Substance: PREGABALIN
     Route: 048
     Dates: start: 20170625
  8. MICRO-KALIUM RETARD [Concomitant]
     Route: 048
     Dates: start: 20160601
  9. NOVALGIN (AUSTRIA) [Concomitant]
     Route: 048
     Dates: start: 20180913
  10. CIPROFLOXACIN. [Concomitant]
     Active Substance: CIPROFLOXACIN
     Route: 048
     Dates: start: 20181201, end: 20181208
  11. ATEZOLIZUMAB. [Suspect]
     Active Substance: ATEZOLIZUMAB
     Indication: HORMONE-REFRACTORY PROSTATE CANCER
     Dosage: ON 15/NOV/2018, AT 11:45 HE RECEIVED HIS MOST RECENT DOSE (1200 MG) OF ATEZOLIZUMAB PRIOR TO THE AE
     Route: 042
     Dates: start: 20180509
  12. LISINOPRIL HCTZ [Concomitant]
     Active Substance: HYDROCHLOROTHIAZIDE\LISINOPRIL
     Route: 048
     Dates: start: 20170625
  13. ASCALAN [Concomitant]
     Active Substance: DOXAZOSIN MESYLATE
     Route: 048
     Dates: start: 20190101, end: 20190120
  14. THROMBO ASS [Concomitant]
     Active Substance: ASPIRIN
     Route: 048
     Dates: start: 20170625
  15. PREGABALIN. [Concomitant]
     Active Substance: PREGABALIN
     Route: 048
     Dates: start: 20181120, end: 20190120
  16. METFORMIN [Concomitant]
     Active Substance: METFORMIN HYDROCHLORIDE
     Route: 048
     Dates: start: 20180418
  17. PAMORELIN [Concomitant]
     Active Substance: TRIPTORELIN PAMOATE
     Route: 030
     Dates: start: 20160301
  18. LENDORM [Concomitant]
     Active Substance: BROTIZOLAM
     Route: 048
     Dates: start: 20181204, end: 20181213
  19. NORVASC [Concomitant]
     Active Substance: AMLODIPINE BESYLATE
     Route: 048
     Dates: start: 20170625
  20. CEFOTAXIME [Concomitant]
     Active Substance: CEFOTAXIME SODIUM
     Route: 042
     Dates: start: 20190107, end: 20190117

REACTIONS (2)
  - Leukopenia [Recovered/Resolved]
  - Nausea [Recovered/Resolved]

NARRATIVE: CASE EVENT DATE: 20181123
